FAERS Safety Report 7539791-X (Version None)
Quarter: 2011Q2

REPORT INFORMATION
  Report Type: 
  Country: None (occurrence: None)
  Receive Date: 20110610
  Receipt Date: 20110603
  Transmission Date: 20111010
  Serious: Yes (Death, Hospitalization)
  Sender: FDA-Public Use
  Company Number: PHHY2011JP50065

PATIENT
  Age: 27 Year
  Sex: Male
  Weight: 67 kg

DRUGS (2)
  1. DICLOFENAC SODIUM [Suspect]
     Indication: PAIN IN EXTREMITY
     Route: 048
     Dates: start: 20090601
  2. DICLOFENAC SODIUM [Suspect]
     Indication: NECK PAIN

REACTIONS (2)
  - PORPHYRIA NON-ACUTE [None]
  - CONDITION AGGRAVATED [None]
